FAERS Safety Report 6718239-9 (Version None)
Quarter: 2010Q2

REPORT INFORMATION
  Report Type: 
  Country: None (occurrence: None)
  Receive Date: 20100510
  Receipt Date: 20100503
  Transmission Date: 20101027
  Serious: Yes (Hospitalization)
  Sender: FDA-Public Use
  Company Number: PHHO2010TW06647

PATIENT
  Sex: Male
  Weight: 73 kg

DRUGS (8)
  1. RAD001 [Suspect]
     Indication: HEPATIC NEOPLASM MALIGNANT
     Dosage: 2.5
     Route: 048
     Dates: start: 20100225, end: 20100421
  2. COMPARATOR SORAFENIB [Suspect]
     Indication: HEPATIC NEOPLASM MALIGNANT
     Dosage: 400 MG, BID
     Route: 048
     Dates: start: 20100225, end: 20100421
  3. AFINITOR [Suspect]
     Indication: HEPATIC NEOPLASM MALIGNANT
     Dosage: NO TREATMENT
  4. BLINDED NO TREATMENT RECEIVED NOMED [Suspect]
     Indication: HEPATIC NEOPLASM MALIGNANT
     Dosage: NO TREATMENT
  5. BLINDED PLACEBO COMP-PLA+ [Suspect]
     Indication: HEPATIC NEOPLASM MALIGNANT
     Dosage: NO TREATMENT
  6. PROHEPARUM [Concomitant]
  7. CLOBETASOL PROPIONATE [Concomitant]
  8. ENTECAVIR [Concomitant]

REACTIONS (3)
  - ABDOMINAL PAIN UPPER [None]
  - CHOLECYSTITIS ACUTE [None]
  - CHOLELITHIASIS [None]
